FAERS Safety Report 5005151-9 (Version None)
Quarter: 2006Q2

REPORT INFORMATION
  Report Type: 
  Country: None (occurrence: None)
  Receive Date: 20060518
  Receipt Date: 20060510
  Transmission Date: 20061013
  Serious: Yes (Disabling)
  Sender: FDA-Public Use
  Company Number: PHEH2006US06140

PATIENT
  Age: 8 Year
  Sex: Male
  Weight: 19.727 kg

DRUGS (1)
  1. FOCALIN XR [Suspect]
     Indication: ATTENTION DEFICIT/HYPERACTIVITY DISORDER
     Dosage: THREE 5 MG CAPSULES
     Route: 048
     Dates: start: 20051028, end: 20060202

REACTIONS (3)
  - DYSURIA [None]
  - PENILE PAIN [None]
  - VITAMIN C INCREASED [None]
